FAERS Safety Report 9112885 (Version 2)
Quarter: 2013Q1

REPORT INFORMATION
  Report Type: Spontaneous
  Country: TR (occurrence: TR)
  Receive Date: 20130211
  Receipt Date: 20130226
  Transmission Date: 20140127
  Serious: Yes (Hospitalization)
  Sender: FDA-Public Use
  Company Number: TR-BAXTER-2013BAX004871

PATIENT
  Age: 13 Year
  Sex: Female
  Weight: 58 kg

DRUGS (3)
  1. KIOVIG 10G/100ML IV INF?ZYON I?IN ??ZELTI I?EREN FLAKON [Suspect]
     Indication: PRIMARY IMMUNODEFICIENCY SYNDROME
     Dates: start: 20121109
  2. BACTRIM [Concomitant]
     Indication: PRODUCT USED FOR UNKNOWN INDICATION
  3. ACYCLOVIR [Concomitant]
     Indication: PRODUCT USED FOR UNKNOWN INDICATION
     Route: 048

REACTIONS (3)
  - Status epilepticus [Recovered/Resolved]
  - JC virus test positive [Not Recovered/Not Resolved]
  - JC virus infection [Not Recovered/Not Resolved]
